FAERS Safety Report 9815807 (Version 1)
Quarter: 2014Q1

REPORT INFORMATION
  Report Type: Report from Study
  Country: GR (occurrence: GR)
  Receive Date: 20140114
  Receipt Date: 20140114
  Transmission Date: 20141002
  Serious: Yes (Death)
  Sender: FDA-Public Use
  Company Number: GR-ASTELLAS-2014US000203

PATIENT
  Age: 66 Year
  Sex: Male

DRUGS (1)
  1. ERLOTINIB TABLET [Suspect]
     Indication: NON-SMALL CELL LUNG CANCER
     Dosage: 150 MG, UID/QD, TOTAL 3 CYCLE
     Route: 048
     Dates: start: 20111014, end: 20111212

REACTIONS (1)
  - Death [Fatal]
